FAERS Safety Report 6135115-3 (Version None)
Quarter: 2009Q1

REPORT INFORMATION
  Report Type: 
  Country: None (occurrence: None)
  Receive Date: 20090327
  Receipt Date: 20090318
  Transmission Date: 20090719
  Serious: Yes (Other)
  Sender: FDA-Public Use
  Company Number: JP-JNJFOC-20090305354

PATIENT
  Age: 81 Year
  Sex: Male

DRUGS (1)
  1. FINIBAX [Suspect]
     Indication: SUBCUTANEOUS ABSCESS
     Route: 041

REACTIONS (3)
  - ANGINA PECTORIS [None]
  - HAEMOLYTIC ANAEMIA [None]
  - PANCYTOPENIA [None]
